FAERS Safety Report 10435060 (Version 1)
Quarter: 2014Q2

REPORT INFORMATION
  Report Type: Spontaneous
  Country: US (occurrence: None)
  Receive Date: 20140618
  Receipt Date: 20140618
  Transmission Date: 20141212
  Serious: Yes (Hospitalization)
  Sender: FDA-Public Use
  Company Number: 100883U

PATIENT
  Age: 29 Year
  Sex: Female
  Weight: 71.4 kg

DRUGS (2)
  1. LACOSAMIDE [Suspect]
     Indication: CONVULSION
     Dates: start: 20111126, end: 201310
  2. KEPPRA [Suspect]
     Indication: CONVULSION
     Dosage: QID, STRENGHT: 750 MG 4 TABLETS)

REACTIONS (1)
  - Convulsion [None]
